FAERS Safety Report 7982315-3 (Version None)
Quarter: 2011Q4

REPORT INFORMATION
  Report Type: 
  Country: None (occurrence: None)
  Receive Date: 20111214
  Receipt Date: 20111214
  Transmission Date: 20120403
  Serious: Yes (Hospitalization)
  Sender: FDA-Public Use
  Company Number: None

PATIENT
  Sex: Female
  Weight: 47.038 kg

DRUGS (5)
  1. VINBLASTINE SULFATE [Suspect]
     Indication: MALIGNANT NEOPLASM OF RENAL PELVIS
     Dosage: V-4 MG IV
     Route: 042
  2. CISPLATIN [Suspect]
     Indication: NEOPLASM MALIGNANT
     Dosage: C-99 MG IV
     Route: 042
  3. DOXORUBICIN HCL [Suspect]
     Indication: NEOPLASM MALIGNANT
     Dosage: A-43 MG IV
     Route: 042
  4. METHOTREXATE [Suspect]
     Indication: NEOPLASM MALIGNANT
     Dosage: M-43 MG IV
     Route: 042
     Dates: start: 20110804
  5. NEULASTA [Suspect]
     Dates: start: 20110805

REACTIONS (7)
  - FAILURE TO THRIVE [None]
  - ILEUS [None]
  - MALNUTRITION [None]
  - FATIGUE [None]
  - DEEP VEIN THROMBOSIS [None]
  - DRUG INTOLERANCE [None]
  - DEVICE RELATED INFECTION [None]
